FAERS Safety Report 11911989 (Version 2)
Quarter: 2016Q1

REPORT INFORMATION
  Report Type: Other
  Country: None (occurrence: US)
  Receive Date: 20160112
  Receipt Date: 20160129
  Transmission Date: 20160526
  Serious: Yes (Disabling, Other)
  Sender: FDA-Public Use
  Company Number: GB-CLARIS PHARMASERVICES-1046431

PATIENT
  Age: 28 Year
  Sex: Female

DRUGS (1)
  1. LEVOFLOXACIN. [Suspect]
     Active Substance: LEVOFLOXACIN
     Indication: ANTIBIOTIC PROPHYLAXIS
     Route: 065

REACTIONS (21)
  - Arthralgia [None]
  - Peripheral coldness [None]
  - Bedridden [None]
  - Muscular weakness [None]
  - Weight bearing difficulty [None]
  - Sensory disturbance [None]
  - Tendon pain [None]
  - Mood altered [None]
  - Confusional state [None]
  - Neurotoxicity [None]
  - Fatigue [None]
  - Dyspnoea [None]
  - Cognitive disorder [None]
  - Non-24-hour sleep-wake disorder [None]
  - Gastrointestinal disorder [None]
  - Muscle spasms [None]
  - Metabolic disorder [None]
  - Myalgia [None]
  - Activities of daily living impaired [None]
  - Muscle atrophy [None]
  - Muscle contractions involuntary [None]
